FAERS Safety Report 7132012-1 (Version None)
Quarter: 2010Q4

REPORT INFORMATION
  Report Type: 
  Country: None (occurrence: None)
  Receive Date: 20101124
  Receipt Date: 20101124
  Transmission Date: 20110411
  Serious: Yes (Disabling)
  Sender: FDA-Public Use
  Company Number: None

PATIENT
  Age: 20 Year
  Sex: Female
  Weight: 83.0083 kg

DRUGS (4)
  1. LAMOTRIGINE [Suspect]
     Indication: EPILEPSY
     Dosage: 150 MG (1 1/2 TABS) BID LOW DOSE TITRATION STARTED
     Dates: start: 20081230
  2. KEPPRA [Suspect]
     Dosage: 500 MG/DAY STOPPED 3/4/10
     Dates: end: 20100304
  3. DAYTRANA [Suspect]
     Dosage: 30MG PER DAY
  4. EFFEXOR XR [Suspect]
     Dosage: 37.5 MG/DAY

REACTIONS (2)
  - DEPRESSION [None]
  - OPTIC NEURITIS [None]
